FAERS Safety Report 12119915 (Version 1)
Quarter: 2016Q1

REPORT INFORMATION
  Report Type: Spontaneous
  Country: US (occurrence: US)
  Receive Date: 20160226
  Receipt Date: 20160226
  Transmission Date: 20160526
  Serious: Yes (Disabling, Congenital Anomaly, Other)
  Sender: FDA-Public Use
  Company Number: US-ABBVIE-11P-163-0835582-00

PATIENT
  Sex: Female

DRUGS (1)
  1. DEPAKOTE [Suspect]
     Active Substance: DIVALPROEX SODIUM
     Indication: MATERNAL EXPOSURE TIMING UNSPECIFIED
     Route: 064

REACTIONS (14)
  - Foetal exposure during pregnancy [Unknown]
  - Multiple injuries [Unknown]
  - Emotional distress [Unknown]
  - Mental impairment [Unknown]
  - Gastroschisis [Unknown]
  - Deformity [Unknown]
  - Loss of employment [Unknown]
  - Physical disability [Unknown]
  - Dissociation [Unknown]
  - Congenital anomaly [Unknown]
  - Pain [Unknown]
  - Anhedonia [Unknown]
  - Unevaluable event [Unknown]
  - Feeling abnormal [Unknown]
